FAERS Safety Report 18769756 (Version 1)
Quarter: 2021Q1

REPORT INFORMATION
  Report Type: Spontaneous
  Country: US (occurrence: US)
  Receive Date: 20210121
  Receipt Date: 20210121
  Transmission Date: 20210419
  Serious: No
  Sender: FDA-Public Use
  Company Number: US-TEVA-2020-US-1863506

PATIENT
  Age: 24 Year
  Sex: Female

DRUGS (1)
  1. AJOVY [Suspect]
     Active Substance: FREMANEZUMAB-VFRM
     Route: 065

REACTIONS (4)
  - Incorrect route of product administration [Unknown]
  - Device defective [Unknown]
  - Accidental exposure to product [Unknown]
  - Device leakage [Unknown]

NARRATIVE: CASE EVENT DATE: 20201222
